FAERS Safety Report 12856468 (Version 4)
Quarter: 2017Q1

REPORT INFORMATION
  Report Type: Other
  Country: US (occurrence: US)
  Receive Date: 20161018
  Receipt Date: 20170309
  Transmission Date: 20170428
  Serious: No
  Sender: FDA-Public Use
  Company Number: PHEH2016US026785

PATIENT
  Sex: Female
  Weight: 3.35 kg

DRUGS (4)
  1. GILENYA [Suspect]
     Active Substance: FINGOLIMOD HYDROCHLORIDE
     Indication: FOETAL EXPOSURE DURING PREGNANCY
     Dosage: MATERNAL DOSE: 0.5 MG, QD
     Route: 064
  2. MULTIVITAMINS [Concomitant]
     Active Substance: VITAMINS
     Indication: FOETAL EXPOSURE DURING PREGNANCY
     Dosage: MATERNLA DOSE: 1 DF, QD (DURING FIRST TRIMESTER)
     Route: 064
     Dates: end: 20160128
  3. GILENYA [Suspect]
     Active Substance: FINGOLIMOD HYDROCHLORIDE
     Indication: EXPOSURE DURING BREAST FEEDING
     Dosage: MATERNAL DOSE: 0.5 MG, QD, RESTARTED ON 28 FEB 2017
     Route: 063
  4. PRENATAL [Concomitant]
     Active Substance: VITAMINS
     Indication: FOETAL EXPOSURE DURING PREGNANCY
     Dosage: DURING 1ST, 2ND, 3RD TRIMESTER
     Route: 064
     Dates: start: 20160129, end: 201611

REACTIONS (2)
  - No adverse event [Unknown]
  - Foetal exposure during pregnancy [Unknown]
